FAERS Safety Report 8422016-0 (Version None)
Quarter: 2012Q2

REPORT INFORMATION
  Report Type: 
  Country: None (occurrence: None)
  Receive Date: 20120608
  Receipt Date: 20120523
  Transmission Date: 20120825
  Serious: Yes (Other)
  Sender: FDA-Public Use
  Company Number: AU-CELGENEUS-008-21880-12040251

PATIENT
  Sex: Male

DRUGS (7)
  1. DEXAMETHASONE [Suspect]
     Indication: MULTIPLE MYELOMA
     Route: 065
     Dates: start: 20120104
  2. TEMAZEPAM [Concomitant]
     Route: 065
     Dates: start: 20120110
  3. REVLIMID [Suspect]
     Indication: MULTIPLE MYELOMA
     Dosage: 25 MILLIGRAM
     Route: 048
     Dates: start: 20120104
  4. ENOXAPARIN SODIUM [Concomitant]
     Route: 065
     Dates: start: 20111214
  5. CEPHALEXIN [Concomitant]
     Route: 065
     Dates: start: 20120327, end: 20120331
  6. NEXIUM [Concomitant]
     Route: 065
     Dates: start: 20111220
  7. ELOTUZUMAB [Suspect]
     Indication: MULTIPLE MYELOMA
     Route: 041
     Dates: start: 20120104, end: 20120328

REACTIONS (1)
  - PLEURAL MESOTHELIOMA [None]
